FAERS Safety Report 6964863-8 (Version None)
Quarter: 2010Q3

REPORT INFORMATION
  Report Type: 
  Country: None (occurrence: None)
  Receive Date: 20100903
  Receipt Date: 20100824
  Transmission Date: 20110219
  Serious: Yes (Life-Threatening, Other)
  Sender: FDA-Public Use
  Company Number: US-JNJFOC-20100209099

PATIENT
  Sex: Male
  Weight: 100.25 kg

DRUGS (2)
  1. INFLIXIMAB [Suspect]
     Indication: PSORIASIS
     Route: 042
  2. ENBREL [Concomitant]
     Indication: PSORIASIS

REACTIONS (4)
  - LUNG NEOPLASM [None]
  - MALIGNANT MELANOMA [None]
  - SQUAMOUS CELL CARCINOMA [None]
  - TONSIL CANCER [None]
